FAERS Safety Report 7574015-9 (Version None)
Quarter: 2011Q2

REPORT INFORMATION
  Report Type: 
  Country: None (occurrence: None)
  Receive Date: 20110627
  Receipt Date: 20110601
  Transmission Date: 20111010
  Serious: Yes (Hospitalization, Other)
  Sender: FDA-Public Use
  Company Number: US-BAYER-2011-021537

PATIENT
  Age: 22 Year
  Sex: Female
  Weight: 140.59 kg

DRUGS (2)
  1. CIPROFLOXACIN [Concomitant]
     Indication: URINARY TRACT INFECTION
  2. YASMIN [Suspect]
     Indication: PREMENSTRUAL SYNDROME
     Dosage: 1 DF, QD
     Dates: start: 20061003, end: 20070301

REACTIONS (6)
  - GALLBLADDER DISORDER [None]
  - INJURY [None]
  - PERINEAL ABSCESS [None]
  - CHOLECYSTITIS [None]
  - ABDOMINAL PAIN [None]
  - FISTULA [None]
